FAERS Safety Report 8056552-6 (Version None)
Quarter: 2012Q1

REPORT INFORMATION
  Report Type: 
  Country: None (occurrence: None)
  Receive Date: 20120119
  Receipt Date: 20120111
  Transmission Date: 20120608
  Serious: Yes (Other)
  Sender: FDA-Public Use
  Company Number: US-CELGENEUS-163-21880-11020695

PATIENT
  Sex: Female

DRUGS (14)
  1. REVLIMID [Suspect]
     Dosage: 15 MILLIGRAM
     Route: 048
     Dates: start: 20101213
  2. VITAMIN D [Concomitant]
     Dosage: 5000 UNIT
     Route: 048
  3. REVLIMID [Suspect]
     Dosage: 10 MILLIGRAM
     Route: 048
     Dates: start: 20091001
  4. REVLIMID [Suspect]
     Dosage: 25 MILLIGRAM
     Route: 048
     Dates: start: 20101201
  5. KLOR-CON [Concomitant]
     Dosage: 20 MILLIEQUIVALENTS
     Route: 048
  6. EXTRA STRENGTH TYLENOL [Concomitant]
     Dosage: 1000 MILLIGRAM
     Route: 048
  7. BORTEZOMIB [Concomitant]
     Indication: MULTIPLE MYELOMA
     Route: 065
     Dates: start: 20110818
  8. SODIUM CHLORIDE [Concomitant]
     Route: 065
     Dates: start: 20110804
  9. DEXAMETHASONE TAB [Concomitant]
     Indication: MULTIPLE MYELOMA
     Route: 048
  10. REVLIMID [Suspect]
     Indication: MULTIPLE MYELOMA
     Dosage: 25 MILLIGRAM
     Route: 048
     Dates: start: 20090701, end: 20090101
  11. ASPIRIN [Concomitant]
     Dosage: 81 MILLIGRAM
     Route: 048
  12. NEULASTA [Concomitant]
     Route: 065
     Dates: start: 20110901, end: 20110912
  13. MULTIVITAMIN WITH MINERALS [Concomitant]
     Dosage: 1
     Route: 048
  14. VITAMIN B COMPLEX CAP [Concomitant]
     Dosage: 1 CAPSULE
     Route: 048

REACTIONS (2)
  - HODGKIN'S DISEASE [None]
  - NEUTROPENIA [None]
